FAERS Safety Report 8445627-5 (Version None)
Quarter: 2012Q2

REPORT INFORMATION
  Report Type: 
  Country: None (occurrence: None)
  Receive Date: 20120618
  Receipt Date: 20120608
  Transmission Date: 20120825
  Serious: Yes (Hospitalization)
  Sender: FDA-Public Use
  Company Number: US-ASTRAZENECA-2012SE38529

PATIENT
  Age: 47 Year
  Sex: Male
  Weight: 110.2 kg

DRUGS (18)
  1. LYRICA [Concomitant]
  2. AMBIEN [Concomitant]
  3. PRISTIQ [Concomitant]
  4. SYMBICORT [Suspect]
     Indication: CHRONIC OBSTRUCTIVE PULMONARY DISEASE
     Dosage: TOTAL DAILY DOSAGE: 320 MCG, BID
     Route: 055
     Dates: start: 20111201
  5. VITAMIN TAB [Concomitant]
  6. KLONOPIN [Concomitant]
  7. SOMA [Concomitant]
  8. ZEBATA [Concomitant]
  9. LANTUS [Concomitant]
  10. VYNASE [Concomitant]
  11. FLOMAX [Concomitant]
  12. SEROQUEL [Concomitant]
  13. XANAX [Concomitant]
  14. DILAUDID [Concomitant]
  15. LAMICTAL [Concomitant]
  16. EXALGO [Concomitant]
  17. SYNTHROID [Concomitant]
  18. ACTIQ [Concomitant]

REACTIONS (3)
  - FALL [None]
  - BRONCHITIS [None]
  - OFF LABEL USE [None]
